FAERS Safety Report 8999029 (Version 1)
Quarter: 2013Q1

REPORT INFORMATION
  Report Type: Spontaneous
  Country: JP (occurrence: JP)
  Receive Date: 20130103
  Receipt Date: 20130103
  Transmission Date: 20140127
  Serious: Yes (Other)
  Sender: FDA-Public Use
  Company Number: JP-009507513-1301JPN000145

PATIENT
  Sex: 0

DRUGS (2)
  1. GASTER [Suspect]
  2. TIENAM [Concomitant]
     Indication: ANTIBIOTIC THERAPY

REACTIONS (1)
  - Liver function test abnormal [Unknown]
